FAERS Safety Report 22045718 (Version 1)
Quarter: 2023Q1

REPORT INFORMATION
  Report Type: Report from Study
  Country: US (occurrence: US)
  Receive Date: 20230228
  Receipt Date: 20230228
  Transmission Date: 20230418
  Serious: Yes (Other)
  Sender: FDA-Public Use
  Company Number: US-MYLANLABS-2023M1020606

PATIENT
  Age: 64 Year
  Sex: Male

DRUGS (5)
  1. WIXELA INHUB [Suspect]
     Active Substance: FLUTICASONE PROPIONATE\SALMETEROL XINAFOATE
     Indication: Product used for unknown indication
     Dosage: UNK
     Route: 065
  2. OFEV [Suspect]
     Active Substance: NINTEDANIB
     Indication: Idiopathic pulmonary fibrosis
     Dosage: 300 MILLIGRAM, BID
     Route: 048
     Dates: start: 20200921
  3. OFEV [Suspect]
     Active Substance: NINTEDANIB
     Dosage: 200 MILLIGRAM, QID
     Route: 048
  4. OFEV [Suspect]
     Active Substance: NINTEDANIB
     Dosage: 150 MILLIGRAM, QD
     Route: 065
  5. SPIRIVA [Suspect]
     Active Substance: TIOTROPIUM BROMIDE MONOHYDRATE
     Indication: Product used for unknown indication
     Dosage: UNK
     Route: 055

REACTIONS (23)
  - Hypokalaemia [Unknown]
  - Abdominal distension [Recovering/Resolving]
  - Decreased appetite [Not Recovered/Not Resolved]
  - Parosmia [Not Recovered/Not Resolved]
  - Pollakiuria [Not Recovered/Not Resolved]
  - COVID-19 [Unknown]
  - Cough [Unknown]
  - Secretion discharge [Unknown]
  - Feeling abnormal [Unknown]
  - Upper-airway cough syndrome [Unknown]
  - Seasonal allergy [Unknown]
  - Vitamin B12 decreased [Unknown]
  - Vitamin D decreased [Unknown]
  - Constipation [Unknown]
  - Pain [Unknown]
  - Pulmonary function test increased [Unknown]
  - Abdominal pain upper [Unknown]
  - Abdominal pain lower [Not Recovered/Not Resolved]
  - Abdominal discomfort [Not Recovered/Not Resolved]
  - Diarrhoea [Not Recovered/Not Resolved]
  - Nausea [Unknown]
  - Dyspnoea [Unknown]
  - Intentional product misuse [Unknown]

NARRATIVE: CASE EVENT DATE: 20201101
